FAERS Safety Report 12521522 (Version 2)
Quarter: 2016Q3

REPORT INFORMATION
  Report Type: Spontaneous
  Country: CA (occurrence: CA)
  Receive Date: 20160701
  Receipt Date: 20160813
  Transmission Date: 20161109
  Serious: Yes (Hospitalization, Other)
  Sender: FDA-Public Use
  Company Number: CA-JNJFOC-20160621246

PATIENT

DRUGS (5)
  1. INFLIXIMAB, RECOMBINANT [Suspect]
     Active Substance: INFLIXIMAB
     Indication: CROHN^S DISEASE
     Dosage: WEEK 0, 2 AND 6, THEN EVERY8 WEEKS FOR MAINTENANCE THERAPY
     Route: 042
  2. MERCAPTOPURINE. [Concomitant]
     Active Substance: MERCAPTOPURINE
     Route: 065
  3. AZATHIOPRINE. [Concomitant]
     Active Substance: AZATHIOPRINE
     Route: 065
  4. METHOTREXATE. [Concomitant]
     Active Substance: METHOTREXATE
     Route: 065
  5. 5-ASA [Concomitant]
     Active Substance: MESALAMINE
     Route: 065

REACTIONS (20)
  - Visual acuity reduced [Unknown]
  - Polyneuropathy [Unknown]
  - Eczema [Unknown]
  - Dry skin [Unknown]
  - Dermatitis [Unknown]
  - Alopecia [Unknown]
  - Depression [Unknown]
  - Psoriasis [Unknown]
  - Injection site reaction [Unknown]
  - Therapeutic response decreased [Unknown]
  - Adverse event [Unknown]
  - Headache [Unknown]
  - Adverse drug reaction [Unknown]
  - Infection [Unknown]
  - Oedema peripheral [Unknown]
  - Neoplasm malignant [Unknown]
  - Hypersensitivity [Unknown]
  - Crohn^s disease [Unknown]
  - Myocardial infarction [Unknown]
  - Anxiety disorder [Unknown]
